FAERS Safety Report 11336118 (Version 1)
Quarter: 2015Q3

REPORT INFORMATION
  Report Type: Spontaneous
  Country: US (occurrence: None)
  Receive Date: 20150731
  Receipt Date: 20150731
  Transmission Date: 20151125
  Serious: Yes (Hospitalization)
  Sender: FDA-Public Use
  Company Number: None

PATIENT
  Age: 83 Year
  Sex: Male
  Weight: 82.4 kg

DRUGS (1)
  1. GLIPIZIDE. [Suspect]
     Active Substance: GLIPIZIDE
     Indication: DIABETES MELLITUS
     Route: 048
     Dates: start: 20070408, end: 20100616

REACTIONS (6)
  - Blood glucose decreased [None]
  - Hypotension [None]
  - Unresponsive to stimuli [None]
  - Serotonin syndrome [None]
  - Decreased appetite [None]
  - Mental status changes [None]

NARRATIVE: CASE EVENT DATE: 20100616
